FAERS Safety Report 20484192 (Version 1)
Quarter: 2022Q1

REPORT INFORMATION
  Report Type: Spontaneous
  Country: US (occurrence: US)
  Receive Date: 20220217
  Receipt Date: 20220217
  Transmission Date: 20220423
  Serious: No
  Sender: FDA-Public Use
  Company Number: US-BAYER-2022A023719

PATIENT
  Age: 81 Year
  Sex: Male

DRUGS (2)
  1. MILK OF MAGNESIA ORIGINAL [Suspect]
     Active Substance: MAGNESIUM HYDROXIDE
     Indication: Gastrointestinal disorder
     Dosage: 15 ML, QD
     Route: 048
     Dates: start: 201202
  2. MIRALAX [Suspect]
     Active Substance: POLYETHYLENE GLYCOL 3350
     Indication: Gastrointestinal disorder
     Dosage: UNK
     Route: 048

REACTIONS (2)
  - Incorrect product administration duration [Unknown]
  - Product prescribing issue [Unknown]
